FAERS Safety Report 4837476-1 (Version None)
Quarter: 2005Q4

REPORT INFORMATION
  Report Type: 
  Country: None (occurrence: None)
  Receive Date: 20051123
  Receipt Date: 20051123
  Transmission Date: 20060501
  Serious: Yes (Hospitalization)
  Sender: FDA-Public Use
  Company Number: None

PATIENT
  Age: 75 Year
  Sex: Male
  Weight: 69.2 kg

DRUGS (8)
  1. OXALIPLATIN [Suspect]
     Indication: ADENOCARCINOMA
     Dosage: 150MG, 150MG VA, IV PUSH
     Route: 042
  2. COUMADIN [Concomitant]
  3. HEPARIN [Concomitant]
  4. ARTIFICIAL TEARS POLYVINYL ALCOHOL [Concomitant]
  5. FLUOROURACIL [Concomitant]
  6. LEUCOVORIN CALCIUM [Concomitant]
  7. DEXAMETHASONE [Concomitant]
  8. ONDANSETRON [Concomitant]

REACTIONS (1)
  - FEBRILE NEUTROPENIA [None]
